FAERS Safety Report 4817113-2 (Version None)
Quarter: 2005Q4

REPORT INFORMATION
  Report Type: 
  Country: None (occurrence: None)
  Receive Date: 20051018
  Receipt Date: 20041101
  Transmission Date: 20060501
  Serious: Yes (Other)
  Sender: FDA-Public Use
  Company Number: PHEH2004US07122

PATIENT
  Age: 46 Year
  Sex: Female

DRUGS (7)
  1. ZOMETA [Suspect]
     Indication: METASTASES TO BONE
     Dosage: 4MG QMO; INTRAVENOUS
     Route: 042
     Dates: start: 20020403, end: 20040401
  2. AREDIA [Suspect]
     Indication: METASTASES TO BONE
     Dosage: 90 MG QMO;
     Dates: start: 19990317, end: 20011229
  3. TAXOTERE [Concomitant]
  4. HERCEPTIN [Concomitant]
  5. MEGACE [Concomitant]
  6. OXYCONTIN [Concomitant]
  7. PERCOCET [Concomitant]

REACTIONS (5)
  - BONE DEBRIDEMENT [None]
  - BONE DISORDER [None]
  - OSTEONECROSIS [None]
  - SEQUESTRECTOMY [None]
  - TOOTH EXTRACTION [None]
